FAERS Safety Report 6623744-X (Version None)
Quarter: 2010Q1

REPORT INFORMATION
  Report Type: 
  Country: None (occurrence: None)
  Receive Date: 20100310
  Receipt Date: 20091116
  Transmission Date: 20100710
  Serious: No
  Sender: FDA-Public Use
  Company Number: US-BIOGENIDEC-2009BI037327

PATIENT
  Age: 36 Year
  Sex: Female

DRUGS (2)
  1. AVONEX [Suspect]
     Indication: MULTIPLE SCLEROSIS
     Route: 030
     Dates: start: 19960101, end: 20090101
  2. AVONEX [Suspect]
     Route: 030
     Dates: start: 20091101

REACTIONS (4)
  - DIZZINESS [None]
  - INFLUENZA LIKE ILLNESS [None]
  - INSOMNIA [None]
  - MYALGIA [None]
